FAERS Safety Report 20155063 (Version 2)
Quarter: 2022Q1

REPORT INFORMATION
  Report Type: Report from Study
  Country: EG (occurrence: EG)
  Receive Date: 20211207
  Receipt Date: 20220225
  Transmission Date: 20220423
  Serious: Yes (Other)
  Sender: FDA-Public Use
  Company Number: EG-NOVARTISPH-NVSC2021EG273082

PATIENT
  Age: 32 Year
  Sex: Female

DRUGS (5)
  1. COSENTYX [Suspect]
     Active Substance: SECUKINUMAB
     Indication: Ankylosing spondylitis
     Dosage: 150 MG, QMO
     Route: 058
     Dates: start: 202012, end: 202104
  2. COSENTYX [Suspect]
     Active Substance: SECUKINUMAB
     Dosage: 150 MG, QMO
     Route: 058
     Dates: start: 202106
  3. ARCOXIA [Concomitant]
     Active Substance: ETORICOXIB
     Indication: Ankylosing spondylitis
     Dosage: UNK (2 TIMES A DAY THEN ONCE A DAY THEN 2 TIMES DAILY AGAIN)
     Route: 065
     Dates: start: 202109
  4. ROXICAN [Concomitant]
     Indication: Ankylosing spondylitis
     Dosage: UNK (2 TIMES A DAY THEN ONCE A DAY THEN 2 TIMES DAILY AGAIN)
     Route: 065
     Dates: start: 202109
  5. DANTRELAX [Concomitant]
     Indication: Ankylosing spondylitis
     Dosage: UNK (2 TIMES A DAY THEN ONCE A DAY THEN 2 TIMES DAILY AGAIN)
     Route: 065
     Dates: start: 202109

REACTIONS (13)
  - Red blood cell sedimentation rate increased [Unknown]
  - Weight increased [Unknown]
  - Arthralgia [Not Recovered/Not Resolved]
  - Joint stiffness [Not Recovered/Not Resolved]
  - Back pain [Not Recovered/Not Resolved]
  - Fatigue [Not Recovered/Not Resolved]
  - Nausea [Recovered/Resolved]
  - Vomiting [Recovered/Resolved]
  - Diarrhoea [Recovered/Resolved]
  - Ocular hyperaemia [Recovering/Resolving]
  - Pain [Not Recovered/Not Resolved]
  - Product dose omission issue [Unknown]
  - Drug ineffective [Not Recovered/Not Resolved]

NARRATIVE: CASE EVENT DATE: 20210201
